FAERS Safety Report 7768041-4 (Version None)
Quarter: 2011Q3

REPORT INFORMATION
  Report Type: 
  Country: None (occurrence: None)
  Receive Date: 20110922
  Receipt Date: 20101229
  Transmission Date: 20111222
  Serious: No
  Sender: FDA-Public Use
  Company Number: US-ASTRAZENECA-2010SE61520

PATIENT
  Age: 740 Month
  Sex: Female

DRUGS (3)
  1. KLONOPIN [Concomitant]
  2. DEPAKOTE [Concomitant]
     Dates: start: 20100601, end: 20101001
  3. SEROQUEL [Suspect]
     Indication: BIPOLAR DISORDER
     Route: 048
     Dates: start: 20100601, end: 20101001

REACTIONS (6)
  - PSYCHOLOGICAL ABUSE [None]
  - FEELING ABNORMAL [None]
  - HYPOTHYROIDISM [None]
  - ADVERSE EVENT [None]
  - AMNESIA [None]
  - CRYING [None]
